FAERS Safety Report 17893610 (Version 1)
Quarter: 2020Q2

REPORT INFORMATION
  Report Type: Spontaneous
  Country: FR (occurrence: FR)
  Receive Date: 20200615
  Receipt Date: 20200615
  Transmission Date: 20200714
  Serious: Yes (Life-Threatening)
  Sender: FDA-Public Use
  Company Number: FR-CADILA HEALTHCARE LIMITED-FR-ZYDUS-030092

PATIENT

DRUGS (9)
  1. METFORMIN [Suspect]
     Active Substance: METFORMIN HYDROCHLORIDE
     Indication: DIABETES MELLITUS
     Dosage: 1000 MILLIGRAM,(INTERVAL :1 DAYS)
     Route: 048
     Dates: end: 20170624
  2. ALDACTAZINE [Suspect]
     Active Substance: ALTHIAZIDE\SPIRONOLACTONE
     Indication: HYPERTENSION
     Dosage: 1 DOSAGE FORM,(INTERVAL :1 DAYS)
     Route: 048
     Dates: end: 20170624
  3. APROVEL [Suspect]
     Active Substance: IRBESARTAN
     Indication: HYPERTENSION
     Dosage: 1 DOSAGE FORM,(INTERVAL :1 DAYS)
     Route: 048
     Dates: end: 20170624
  4. FUROSEMIDE. [Suspect]
     Active Substance: FUROSEMIDE
     Indication: HYPERTENSION
     Dosage: 40 MILLIGRAM,(INTERVAL :1 DAYS)
     Route: 048
     Dates: end: 20170624
  5. METFORMINE (CHLORHYDRATE DE),VILDAGLIPTINE [Suspect]
     Active Substance: METFORMIN HYDROCHLORIDE\VILDAGLIPTIN
     Indication: DIABETES MELLITUS
     Dosage: 2 DOSAGE FORM,(INTERVAL :1 DAYS)
     Route: 048
     Dates: end: 20170624
  6. DIAMICRON [Concomitant]
     Active Substance: GLICLAZIDE
     Dosage: ()
  7. PREVISCAN [Concomitant]
     Dosage: ()
  8. HEMIGOXINE NATIVELLE [Suspect]
     Active Substance: DIGOXIN
     Indication: ATRIAL FIBRILLATION
     Dosage: 1 DOSAGE FORM,(INTERVAL :1 DAYS)
     Route: 048
     Dates: end: 20170624
  9. NEBIVOLOL. [Suspect]
     Active Substance: NEBIVOLOL
     Indication: HYPERTENSION
     Dosage: 10 MILLIGRAM,(INTERVAL :1 DAYS)
     Route: 048
     Dates: end: 20170624

REACTIONS (5)
  - Acute kidney injury [Recovered/Resolved]
  - Lactic acidosis [Recovered/Resolved]
  - Bradycardia [Recovered/Resolved]
  - Hyperkalaemia [Recovered/Resolved]
  - Anuria [Recovered/Resolved]

NARRATIVE: CASE EVENT DATE: 20170624
